FAERS Safety Report 8488236-4 (Version None)
Quarter: 2012Q3

REPORT INFORMATION
  Report Type: 
  Country: None (occurrence: None)
  Receive Date: 20120705
  Receipt Date: 20120628
  Transmission Date: 20120928
  Serious: Yes (Hospitalization, Disabling, Other)
  Sender: FDA-Public Use
  Company Number: US-BAYER-2011-096655

PATIENT
  Age: 45 Year
  Sex: Female
  Weight: 81.633 kg

DRUGS (8)
  1. EFFEXOR XR [Concomitant]
     Dosage: 150 MG, UNK
     Route: 048
     Dates: start: 20060116
  2. METRONIDAZOLE [Concomitant]
     Dosage: 250 MG, UNK
     Route: 048
     Dates: start: 20051220
  3. AZITHROMYCIN [Concomitant]
     Dosage: 250 MG, UNK
     Route: 048
     Dates: start: 20060105
  4. MOTRIN [Concomitant]
     Dosage: 200 MG, 4-6 PER DAY
  5. WELLBUTRIN [Concomitant]
  6. YASMIN [Suspect]
     Indication: MENSTRUAL CYCLE MANAGEMENT
     Dosage: UNK
     Dates: start: 20040601, end: 20060301
  7. EFFEXOR XR [Concomitant]
     Dosage: 150 MG, UNK
     Route: 048
     Dates: start: 20060116
  8. YASMIN [Suspect]
     Indication: CONTRACEPTION

REACTIONS (11)
  - ANXIETY [None]
  - PARAESTHESIA [None]
  - DEPRESSION [None]
  - CEREBRAL INFARCTION [None]
  - DYSAESTHESIA [None]
  - HEADACHE [None]
  - DYSPHAGIA [None]
  - NAUSEA [None]
  - MENTAL DISORDER [None]
  - HEMIANOPIA HOMONYMOUS [None]
  - INJURY [None]
